FAERS Safety Report 6015017-3 (Version None)
Quarter: 2008Q4

REPORT INFORMATION
  Report Type: 
  Country: None (occurrence: None)
  Receive Date: 20081221
  Receipt Date: 20081209
  Transmission Date: 20090506
  Serious: No
  Sender: FDA-Public Use
  Company Number: PHHY2008SE31009

PATIENT
  Age: 69 Year
  Sex: Female

DRUGS (2)
  1. LESCOL [Suspect]
     Dosage: UNK
     Dates: end: 20081122
  2. LESCOL [Suspect]
     Dosage: UNK

REACTIONS (6)
  - BACK PAIN [None]
  - BLOOD CHOLESTEROL DECREASED [None]
  - CONSTIPATION [None]
  - DYSPNOEA [None]
  - INCREASED UPPER AIRWAY SECRETION [None]
  - PNEUMONIA [None]
